FAERS Safety Report 7176879-X (Version None)
Quarter: 2010Q4

REPORT INFORMATION
  Report Type: 
  Country: None (occurrence: None)
  Receive Date: 20101220
  Receipt Date: 20101214
  Transmission Date: 20110411
  Serious: Yes (Hospitalization)
  Sender: FDA-Public Use
  Company Number: US-AMGEN-USASP2010009338

PATIENT

DRUGS (1)
  1. ENBREL [Suspect]
     Indication: RHEUMATOID ARTHRITIS
     Dates: start: 20060101

REACTIONS (6)
  - APHAGIA [None]
  - APHONIA [None]
  - ASTHMA [None]
  - ATRIAL FIBRILLATION [None]
  - DYSPNOEA [None]
  - NASOPHARYNGITIS [None]
